FAERS Safety Report 22399836 (Version 1)
Quarter: 2023Q2

REPORT INFORMATION
  Report Type: Spontaneous
  Country: IE (occurrence: IE)
  Receive Date: 20230602
  Receipt Date: 20230602
  Transmission Date: 20230722
  Serious: Yes (Other)
  Sender: FDA-Public Use
  Company Number: None

PATIENT
  Age: 25 Year
  Sex: Male

DRUGS (3)
  1. PREGABALIN [Suspect]
     Active Substance: PREGABALIN
     Indication: Product used for unknown indication
     Dosage: 1000 MILLIGRAM,(24 HOURS) QD
     Route: 048
  2. DIAZEPAM [Concomitant]
     Active Substance: DIAZEPAM
     Indication: Drug dependence
     Dosage: 5 MILLIGRAM, Q6H
     Route: 065
  3. METHADONE [Concomitant]
     Active Substance: METHADONE HYDROCHLORIDE
     Indication: Drug dependence
     Dosage: 70 MILLIGRAM,24 HOURS (QD)
     Route: 065

REACTIONS (4)
  - Substance use [Unknown]
  - Euphoric mood [Unknown]
  - Drug abuse [Unknown]
  - Prescription drug used without a prescription [Unknown]
